FAERS Safety Report 9363759 (Version 7)
Quarter: 2013Q4

REPORT INFORMATION
  Report Type: Spontaneous
  Country: BE (occurrence: BE)
  Receive Date: 20130624
  Receipt Date: 20131111
  Transmission Date: 20140711
  Serious: Yes (Hospitalization)
  Sender: FDA-Public Use
  Company Number: BE-009507513-1304BEL007187

PATIENT
  Age: 59 Year
  Sex: Male

DRUGS (7)
  1. REBETOL [Suspect]
     Indication: HEPATITIS C
     Dosage: BID, TOTAL DAILY DOSE: 1200 MILIGRAMS
     Route: 048
     Dates: start: 20121107, end: 20130312
  2. REBETOL [Suspect]
     Dosage: 2 TABS IN THE MORNING AND 2 TABS IN THE EVENING
     Route: 048
     Dates: start: 20130313, end: 20130605
  3. PEGINTRON [Suspect]
     Indication: HEPATITIS C
     Dosage: 150 MICROGRAMS, QW, TOTAL DAILY DOSE: 150 MICROGRAM
     Dates: start: 20121107, end: 20130925
  4. VICTRELIS [Suspect]
     Indication: HEPATITIS C
     Dosage: TID, TOTAL DAILY DOSE 2400 MILLIGRAMS
     Route: 048
     Dates: start: 20121205, end: 20130925
  5. METHADONE HYDROCHLORIDE [Concomitant]
     Dosage: UNK, TID
     Route: 048
  6. SIPRALEXA [Concomitant]
     Dosage: TOTAL DAILY DOSE 5 MG, QD
  7. ZINNAT [Concomitant]
     Dosage: 500 MG, TID

REACTIONS (25)
  - Confusional state [Unknown]
  - Pneumonia [Recovering/Resolving]
  - Fatigue [Unknown]
  - Malaise [Unknown]
  - Erythema [Recovered/Resolved]
  - Rash [Recovered/Resolved]
  - Sciatica [Recovering/Resolving]
  - Pain [Recovering/Resolving]
  - Wound haemorrhage [Recovered/Resolved]
  - Impaired healing [Unknown]
  - Salivary hypersecretion [Not Recovered/Not Resolved]
  - Nervousness [Recovering/Resolving]
  - Hyperhidrosis [Unknown]
  - Respiration abnormal [Unknown]
  - Memory impairment [Recovering/Resolving]
  - Dyspepsia [Unknown]
  - Vomiting [Unknown]
  - Diarrhoea [Not Recovered/Not Resolved]
  - Faeces discoloured [Not Recovered/Not Resolved]
  - Increased upper airway secretion [Not Recovered/Not Resolved]
  - Migraine [Unknown]
  - Anxiety [Unknown]
  - Tic [Unknown]
  - Dyskinesia [Unknown]
  - Limb injury [Unknown]
